FAERS Safety Report 20981705 (Version 2)
Quarter: 2022Q4

REPORT INFORMATION
  Report Type: Spontaneous
  Country: JP (occurrence: JP)
  Receive Date: 20220620
  Receipt Date: 20221123
  Transmission Date: 20230112
  Serious: Yes (Hospitalization, Other)
  Sender: FDA-Public Use
  Company Number: JP-CHUGAI-2022022268

PATIENT
  Age: 7 Decade
  Sex: Female

DRUGS (4)
  1. AVASTIN [Suspect]
     Active Substance: BEVACIZUMAB
     Indication: Ovarian cancer
     Dosage: 15 MILLIGRAM/KILOGRAM, ONCE/3WEEKS
     Route: 041
  2. DOCETAXEL [Suspect]
     Active Substance: DOCETAXEL
     Indication: Ovarian cancer
     Dosage: UNK
     Route: 041
  3. PACLITAXEL [Suspect]
     Active Substance: PACLITAXEL
     Indication: Ovarian cancer
     Dosage: UNK
     Route: 041
  4. CARBOPLATIN [Concomitant]
     Active Substance: CARBOPLATIN
     Indication: Ovarian cancer
     Dosage: UNK
     Route: 041

REACTIONS (3)
  - Fall [Unknown]
  - Fracture [Recovered/Resolved]
  - Febrile neutropenia [Recovered/Resolved]

NARRATIVE: CASE EVENT DATE: 20220601
